FAERS Safety Report 6074780-6 (Version None)
Quarter: 2009Q1

REPORT INFORMATION
  Report Type: 
  Country: None (occurrence: None)
  Receive Date: 20090212
  Receipt Date: 20090205
  Transmission Date: 20090719
  Serious: Yes (Hospitalization)
  Sender: FDA-Public Use
  Company Number: FR-WYE-G03065309

PATIENT
  Age: 42 Year
  Sex: Female

DRUGS (6)
  1. EFFEXOR [Suspect]
     Dosage: UNKNOWN
     Route: 048
     Dates: start: 20080908
  2. LANSOPRAZOLE [Concomitant]
     Indication: DUODENAL ULCER
     Dosage: UNKNOWN
     Route: 048
     Dates: start: 20080829, end: 20080928
  3. LESCOL [Suspect]
     Indication: HYPERCHOLESTEROLAEMIA
     Dosage: UNKNOWN
     Route: 048
     Dates: start: 20080908, end: 20081001
  4. ZOLPIDEM [Suspect]
     Dosage: UNKNOWN
     Route: 048
     Dates: start: 20080818
  5. SALAZOPYRINE [Suspect]
     Indication: RHEUMATOID ARTHRITIS
     Dosage: 500 MG STRENGTH; FREQUENCY UNSPECIFIED
     Route: 048
     Dates: start: 20080908, end: 20081001
  6. CYCLADOL [Suspect]
     Dosage: 20 MG STRENGTH; FREQUENCY UNSPECIFIED
     Route: 048
     Dates: start: 20080908, end: 20081001

REACTIONS (8)
  - ANAL FISSURE [None]
  - DIARRHOEA [None]
  - DRUG RASH WITH EOSINOPHILIA AND SYSTEMIC SYMPTOMS [None]
  - ENTEROBACTER SEPSIS [None]
  - HAEMODYNAMIC INSTABILITY [None]
  - HEPATITIS FULMINANT [None]
  - RESPIRATORY DISTRESS [None]
  - SEPTIC SHOCK [None]
